FAERS Safety Report 5600572-5 (Version None)
Quarter: 2008Q1

REPORT INFORMATION
  Report Type: 
  Country: None (occurrence: None)
  Receive Date: 20080123
  Receipt Date: 20080103
  Transmission Date: 20080703
  Serious: No
  Sender: FDA-Public Use
  Company Number: US-BOEHRINGER INGELHEIM PHARMACEUTICALS, INC.-2007-BP-25130BP

PATIENT
  Sex: Male

DRUGS (7)
  1. CATAPRES-TTS-1 [Suspect]
     Indication: HYPERTENSION
     Route: 061
     Dates: start: 20070719
  2. SYNTHROID [Concomitant]
  3. BETHANECHOL [Concomitant]
  4. PREVACID [Concomitant]
  5. LORAZEPAM [Concomitant]
  6. CLONIDINE [Concomitant]
  7. AVODART [Concomitant]

REACTIONS (4)
  - APPLICATION SITE ERYTHEMA [None]
  - APPLICATION SITE PRURITUS [None]
  - APPLICATION SITE RASH [None]
  - THERAPEUTIC RESPONSE DECREASED [None]
